FAERS Safety Report 6818349-1 (Version None)
Quarter: 2010Q3

REPORT INFORMATION
  Report Type: 
  Country: None (occurrence: None)
  Receive Date: 20100706
  Receipt Date: 20080707
  Transmission Date: 20110219
  Serious: No
  Sender: FDA-Public Use
  Company Number: US-PFIZER INC-2008013156

PATIENT
  Sex: Female
  Weight: 19.5 kg

DRUGS (1)
  1. AZITHROMYCIN [Suspect]
     Indication: COUGH
     Dates: start: 20080207, end: 20080211

REACTIONS (5)
  - ABDOMINAL PAIN UPPER [None]
  - DECREASED APPETITE [None]
  - DYSPEPSIA [None]
  - GASTROOESOPHAGEAL REFLUX DISEASE [None]
  - NAUSEA [None]
